FAERS Safety Report 8495726 (Version 15)
Quarter: 2014Q1

REPORT INFORMATION
  Report Type: Report from Study
  Country: BR (occurrence: BR)
  Receive Date: 20120405
  Receipt Date: 20140115
  Transmission Date: 20141002
  Serious: Yes (Hospitalization)
  Sender: FDA-Public Use
  Company Number: BR-ROCHE-1039535

PATIENT
  Age: 43 Year
  Sex: Female
  Weight: 69.2 kg

DRUGS (19)
  1. BLINDED TOCILIZUMAB [Suspect]
     Indication: RHEUMATOID ARTHRITIS
     Dosage: DATE OF MOST RECENT DOSE 20/JAN/2012
     Route: 058
     Dates: start: 20110817
  2. TOCILIZUMAB [Suspect]
     Indication: RHEUMATOID ARTHRITIS
     Dosage: DELIVERY METHOD: AUTO INJECTOR, DATE OF MOST RECENT DOSE 14/FEB/2012
     Route: 058
     Dates: start: 20120130
  3. METHOTREXATE [Suspect]
     Indication: RHEUMATOID ARTHRITIS
     Route: 048
     Dates: start: 2009, end: 20120207
  4. METHOTREXATE [Suspect]
     Route: 048
     Dates: start: 20120208, end: 20120229
  5. LEFLUNOMIDE [Concomitant]
     Indication: RHEUMATOID ARTHRITIS
     Route: 048
     Dates: start: 2008, end: 2009
  6. FOLIC ACID [Concomitant]
     Route: 048
     Dates: start: 2005, end: 20120214
  7. FOLIC ACID [Concomitant]
     Route: 048
     Dates: start: 20120221, end: 20120223
  8. OMEPRAZOLE [Concomitant]
     Route: 048
     Dates: start: 2000, end: 20120305
  9. OMEPRAZOLE [Concomitant]
     Route: 048
     Dates: start: 20120309, end: 20120312
  10. OMEPRAZOLE [Concomitant]
     Route: 048
     Dates: start: 20120315
  11. PARACETAMOL [Concomitant]
     Indication: RHEUMATOID ARTHRITIS
     Route: 048
     Dates: start: 1991, end: 20120305
  12. PREDNISONE [Concomitant]
     Indication: RHEUMATOID ARTHRITIS
     Route: 048
     Dates: start: 20110906, end: 20120305
  13. PREDNISONE [Concomitant]
     Route: 048
     Dates: start: 20120313
  14. CALCIUM CARBONATE [Concomitant]
     Route: 048
     Dates: start: 20111110, end: 20120305
  15. CHOLECALCIFEROL [Concomitant]
     Route: 048
     Dates: start: 20111110, end: 20120305
  16. SALINE [Concomitant]
     Route: 042
     Dates: start: 20120309, end: 20120312
  17. GLUCOSE [Concomitant]
     Route: 042
     Dates: start: 20120309, end: 20120312
  18. DEXAMETHASONE [Concomitant]
     Route: 061
     Dates: start: 20111124, end: 20120119
  19. METHOTREXATE [Concomitant]
     Route: 048
     Dates: start: 20120208, end: 20120229

REACTIONS (7)
  - Pancreatitis acute [Recovered/Resolved]
  - Alanine aminotransferase increased [Recovered/Resolved]
  - Hepatitis [Recovered/Resolved]
  - Injection site erythema [Recovered/Resolved]
  - Injection site pruritus [Recovered/Resolved]
  - Injection site erythema [Recovered/Resolved]
  - Injection site pruritus [Recovered/Resolved]
